FAERS Safety Report 11513255 (Version 1)
Quarter: 2015Q3

REPORT INFORMATION
  Report Type: Spontaneous
  Country: US (occurrence: US)
  Receive Date: 20150903
  Receipt Date: 20150903
  Transmission Date: 20151125
  Serious: No
  Sender: FDA-Public Use
  Company Number: US-ELI_LILLY_AND_COMPANY-US201206008491

PATIENT
  Age: 65 Year
  Sex: Female

DRUGS (7)
  1. LYRICA [Concomitant]
     Active Substance: PREGABALIN
     Dosage: 50 MG, QD
  2. NEURONTIN [Concomitant]
     Active Substance: GABAPENTIN
     Dosage: 2400 MG, QD
  3. HYDROCODONE [Concomitant]
     Active Substance: HYDROCODONE
  4. PREMPRO [Concomitant]
     Active Substance: ESTROGENS, CONJUGATED\MEDROXYPROGESTERONE ACETATE
  5. CYMBALTA [Suspect]
     Active Substance: DULOXETINE HYDROCHLORIDE
     Dosage: 60 MG, QD
     Dates: start: 201204, end: 20120512
  6. KLONOPIN [Concomitant]
     Active Substance: CLONAZEPAM
  7. CYMBALTA [Suspect]
     Active Substance: DULOXETINE HYDROCHLORIDE
     Indication: PAIN
     Dosage: 30 MG, QD
     Route: 065
     Dates: start: 201203, end: 201204

REACTIONS (10)
  - Heart rate increased [Recovered/Resolved]
  - Back pain [Recovered/Resolved]
  - Logorrhoea [Recovered/Resolved]
  - Crying [Unknown]
  - Drug withdrawal syndrome [Unknown]
  - Vision blurred [Recovered/Resolved]
  - Fatigue [Recovered/Resolved]
  - Apathy [Recovered/Resolved]
  - Drug ineffective [Recovered/Resolved]
  - Hyperhidrosis [Recovered/Resolved]
